FAERS Safety Report 5887202-2 (Version None)
Quarter: 2008Q3

REPORT INFORMATION
  Report Type: 
  Country: None (occurrence: None)
  Receive Date: 20080915
  Receipt Date: 20080909
  Transmission Date: 20090109
  Serious: Yes (Life-Threatening)
  Sender: FDA-Public Use
  Company Number: 2008-183335-NL

PATIENT
  Age: 61 Year
  Sex: Female

DRUGS (3)
  1. ROCURONIUM BROMIDE [Suspect]
     Dosage: INTRAVENOUS (NOS)
     Route: 011
     Dates: start: 20050528, end: 20050528
  2. ALFENTANIL [Concomitant]
  3. PROPOFOL [Concomitant]

REACTIONS (2)
  - BRONCHOSPASM [None]
  - CARDIAC ARREST [None]
